FAERS Safety Report 5256928-6 (Version None)
Quarter: 2007Q1

REPORT INFORMATION
  Report Type: 
  Country: None (occurrence: None)
  Receive Date: 20070305
  Receipt Date: 20070305
  Transmission Date: 20070707
  Serious: Yes (Hospitalization)
  Sender: FDA-Public Use
  Company Number: None

PATIENT
  Age: 75 Year
  Sex: Male
  Weight: 98 kg

DRUGS (1)
  1. TIGECYCLINE    100MG [Suspect]
     Indication: ABDOMINAL INFECTION
     Dosage: 100 MG   EVERY 12 HOURS  IV BOLUS
     Route: 040
     Dates: start: 20070205, end: 20070209

REACTIONS (3)
  - ALANINE AMINOTRANSFERASE INCREASED [None]
  - ASPARTATE AMINOTRANSFERASE INCREASED [None]
  - BLOOD ALKALINE PHOSPHATASE INCREASED [None]
